FAERS Safety Report 18300953 (Version 1)
Quarter: 2020Q3

REPORT INFORMATION
  Report Type: Spontaneous
  Country: BG (occurrence: BG)
  Receive Date: 20200923
  Receipt Date: 20200923
  Transmission Date: 20201103
  Serious: Yes (Other)
  Sender: FDA-Public Use
  Company Number: NVSC2020BG249000

PATIENT
  Age: 63 Year
  Sex: Female

DRUGS (2)
  1. DEXAMETHASONE. [Suspect]
     Active Substance: DEXAMETHASONE
     Indication: CONJUNCTIVITIS
     Dosage: UNK
     Route: 065
  2. DEXAMETHASONE,TOBRAMYCIN [Suspect]
     Active Substance: DEXAMETHASONE\TOBRAMYCIN
     Indication: CONJUNCTIVITIS
     Dosage: UNK
     Route: 065

REACTIONS (2)
  - Glaucoma [Recovering/Resolving]
  - Therapy partial responder [Unknown]
